FAERS Safety Report 22074522 (Version 1)
Quarter: 2023Q1

REPORT INFORMATION
  Report Type: Report from Study
  Country: CA (occurrence: CA)
  Receive Date: 20230308
  Receipt Date: 20230308
  Transmission Date: 20230418
  Serious: Yes (Other)
  Sender: FDA-Public Use
  Company Number: CA-GILEAD-2022-0599282

PATIENT
  Age: 50 Year
  Sex: Female

DRUGS (10)
  1. SACITUZUMAB GOVITECAN-HZIY [Suspect]
     Active Substance: SACITUZUMAB GOVITECAN-HZIY
     Indication: Triple negative breast cancer
     Dosage: 830 MG ON C1D1 AND C1D8
     Route: 042
     Dates: start: 20220912, end: 20220919
  2. SACITUZUMAB GOVITECAN-HZIY [Suspect]
     Active Substance: SACITUZUMAB GOVITECAN-HZIY
     Dosage: UNK, C5
     Route: 042
     Dates: start: 20221213
  3. SACITUZUMAB GOVITECAN-HZIY [Suspect]
     Active Substance: SACITUZUMAB GOVITECAN-HZIY
     Dosage: 620 MG C6D1
     Route: 042
     Dates: start: 20230104
  4. SACITUZUMAB GOVITECAN-HZIY [Suspect]
     Active Substance: SACITUZUMAB GOVITECAN-HZIY
     Dosage: 620 MG
     Route: 042
     Dates: start: 20230119
  5. SACITUZUMAB GOVITECAN-HZIY [Suspect]
     Active Substance: SACITUZUMAB GOVITECAN-HZIY
     Dosage: 7.5 MG/KG (DOSE REDUCTION)
     Route: 042
     Dates: start: 20230131
  6. SACITUZUMAB GOVITECAN-HZIY [Suspect]
     Active Substance: SACITUZUMAB GOVITECAN-HZIY
     Dosage: UNK
     Route: 042
     Dates: start: 20230202
  7. TAXOL [Concomitant]
     Active Substance: PACLITAXEL
  8. CARBOPLATIN [Concomitant]
     Active Substance: CARBOPLATIN
  9. XELODA [Concomitant]
     Active Substance: CAPECITABINE
  10. GEMCITABINE [Concomitant]
     Active Substance: GEMCITABINE

REACTIONS (6)
  - Disease progression [Unknown]
  - Diarrhoea [Unknown]
  - Fatigue [Unknown]
  - COVID-19 [Unknown]
  - Inappropriate schedule of product administration [Recovered/Resolved]
  - Inappropriate schedule of product administration [Recovered/Resolved]
